FAERS Safety Report 9032414 (Version 1)
Quarter: 2013Q1

REPORT INFORMATION
  Report Type: Spontaneous
  Country: CH (occurrence: None)
  Receive Date: 20130108
  Receipt Date: 20130108
  Transmission Date: 20140127
  Serious: Yes (Life-Threatening, Hospitalization)
  Sender: FDA-Public Use
  Company Number: DSA_61675_2013

PATIENT
  Age: 90 Year
  Sex: Female

DRUGS (17)
  1. FLAGYL [Suspect]
     Indication: PRODUCT USED FOR UNKNOWN INDICATION
     Dates: start: 20121205, end: 20121209
  2. ZOLPIDEM [Suspect]
     Indication: PRODUCT USED FOR UNKNOWN INDICATION
  3. ZALDIAR [Suspect]
     Indication: PAIN
     Route: 048
  4. PARACETAMOL (PARACETAMOL) [Suspect]
     Indication: PAIN
     Route: 048
     Dates: start: 20121204, end: 20121209
  5. ROCEPHIN [Suspect]
     Indication: PRODUCT USED FOR UNKNOWN INDICATION
     Dates: start: 20121205, end: 20121209
  6. XARELTO [Suspect]
     Indication: PRODUCT USED FOR UNKNOWN INDICATION
     Dates: start: 20121207, end: 20121209
  7. AMLODIPINE (AMLODIPINE) [Suspect]
     Indication: PRODUCT USED FOR UNKNOWN INDICATION
     Dates: end: 20121208
  8. ESOMEPRAZOLE [Suspect]
     Indication: PRODUCT USED FOR UNKNOWN INDICATION
     Dates: start: 20121205, end: 20121209
  9. REMINYL [Suspect]
     Indication: PRODUCT USED FOR UNKNOWN INDICATION
     Dates: end: 20121211
  10. INEGY [Suspect]
     Indication: PRODUCT USED FOR UNKNOWN INDICATION
     Dates: end: 20121208
  11. CIPRALEX [Suspect]
     Indication: PRODUCT USED FOR UNKNOWN INDICATION
     Dates: end: 20121206
  12. CALCIPARIN [Concomitant]
  13. OMEPRAZOLE [Concomitant]
  14. IBUPROFEN [Concomitant]
  15. CALCIMAGON-D3 [Concomitant]
  16. PREDNISOLONE [Concomitant]
  17. ASA [Concomitant]

REACTIONS (7)
  - Hepatocellular injury [None]
  - Pyrexia [None]
  - Abdominal pain [None]
  - Diarrhoea [None]
  - Diverticulitis [None]
  - Heparin-induced thrombocytopenia [None]
  - Acute hepatic failure [None]
